FAERS Safety Report 21498967 (Version 2)
Quarter: 2022Q4

REPORT INFORMATION
  Report Type: Spontaneous
  Country: DE (occurrence: DE)
  Receive Date: 20221024
  Receipt Date: 20221103
  Transmission Date: 20230112
  Serious: Yes (Death, Other)
  Sender: FDA-Public Use
  Company Number: DE-009507513-2210DEU008309

PATIENT
  Age: 65 Year
  Sex: Female
  Weight: 163 kg

DRUGS (5)
  1. KEYTRUDA [Suspect]
     Active Substance: PEMBROLIZUMAB
     Indication: Endometrial cancer
     Dosage: 200 MILLIGRAM, (ALSO REPORTED AS MICROGRAM) Q3W
     Route: 042
  2. LENVATINIB MESYLATE [Suspect]
     Active Substance: LENVATINIB MESYLATE
     Indication: Endometrial cancer
     Dosage: 20 MILLIGRAM
     Route: 048
     Dates: start: 20220915, end: 20221015
  3. DEXAMETHASONE [Concomitant]
     Active Substance: DEXAMETHASONE
     Indication: Endometrial cancer
     Dosage: 8 MG
     Route: 048
     Dates: end: 20221015
  4. OPIPRAMOL [Concomitant]
     Active Substance: OPIPRAMOL
     Dosage: STOP DATE REPORTED AS DISCONTINUED
  5. LEVOTHYROXINE SODIUM [Concomitant]
     Active Substance: LEVOTHYROXINE SODIUM
     Indication: Hypothyroidism
     Dosage: 50 MICROGRAM
     Dates: end: 20221015

REACTIONS (2)
  - Tumour haemorrhage [Fatal]
  - Malignant neoplasm progression [Fatal]

NARRATIVE: CASE EVENT DATE: 20221015
